FAERS Safety Report 18367161 (Version 1)
Quarter: 2020Q4

REPORT INFORMATION
  Report Type: Spontaneous
  Country: US (occurrence: US)
  Receive Date: 20201009
  Receipt Date: 20201009
  Transmission Date: 20210114
  Serious: No
  Sender: FDA-Public Use
  Company Number: US-ROMARKLABS-2020-US-000196

PATIENT
  Age: 3 Year
  Sex: Male

DRUGS (5)
  1. OMEGA 3 [Concomitant]
     Active Substance: OMEGA-3 FATTY ACIDS
     Indication: NUTRITIONAL SUPPLEMENTATION
  2. FLUCONAZOLE. [Concomitant]
     Active Substance: FLUCONAZOLE
     Indication: PRODUCT USED FOR UNKNOWN INDICATION
  3. GREEN TEA EXTRACT [Concomitant]
     Indication: NUTRITIONAL SUPPLEMENTATION
  4. ALINIA [Suspect]
     Active Substance: NITAZOXANIDE
     Indication: PRODUCT USED FOR UNKNOWN INDICATION
     Dosage: TAKE 1/2 TABLET BY MOUTH TWICE DAILY
     Route: 048
     Dates: start: 20200702
  5. GLUTATHIONE [Concomitant]
     Active Substance: GLUTATHIONE
     Indication: NUTRITIONAL SUPPLEMENTATION

REACTIONS (1)
  - Constipation [Unknown]

NARRATIVE: CASE EVENT DATE: 20200722
